FAERS Safety Report 7393459-1 (Version None)
Quarter: 2011Q2

REPORT INFORMATION
  Report Type: 
  Country: None (occurrence: None)
  Receive Date: 20110405
  Receipt Date: 20101026
  Transmission Date: 20111010
  Serious: Yes (Hospitalization, Disabling, Other)
  Sender: FDA-Public Use
  Company Number: US-BAYER-201025153NA

PATIENT
  Sex: Female
  Weight: 47.619 kg

DRUGS (3)
  1. ACYCLOVIR [Concomitant]
     Dosage: UNK
     Route: 048
     Dates: start: 20090501
  2. POLYTRIM [Concomitant]
     Dosage: UNK
     Route: 047
     Dates: start: 20090501
  3. YAZ [Suspect]
     Indication: CONTRACEPTION
     Dosage: UNK UNK, QD
     Route: 048
     Dates: start: 20070101, end: 20090701

REACTIONS (3)
  - DEEP VEIN THROMBOSIS [None]
  - LEG AMPUTATION [None]
  - THROMBOSIS [None]
